FAERS Safety Report 6635950-9 (Version None)
Quarter: 2010Q1

REPORT INFORMATION
  Report Type: 
  Country: None (occurrence: None)
  Receive Date: 20100316
  Receipt Date: 20100311
  Transmission Date: 20100710
  Serious: Yes (Hospitalization, Disabling)
  Sender: FDA-Public Use
  Company Number: JP-SANOFI-AVENTIS-2010SA000252

PATIENT
  Age: 85 Year
  Sex: Male
  Weight: 72.5 kg

DRUGS (8)
  1. PLAVIX [Suspect]
     Route: 048
     Dates: start: 20091009
  2. ASPIRIN [Concomitant]
     Route: 065
     Dates: start: 20061206
  3. HEPARIN [Concomitant]
     Dosage: DOSE:10000 UNIT(S)
     Route: 042
     Dates: start: 20091105, end: 20091105
  4. ADALAT CC [Concomitant]
     Route: 048
  5. DIOVANE [Concomitant]
     Route: 048
  6. AMARYL [Concomitant]
     Route: 048
  7. BASEN [Concomitant]
     Route: 048
  8. CRESTOR [Concomitant]
     Route: 048

REACTIONS (2)
  - CEREBRAL INFARCTION [None]
  - INTRACARDIAC THROMBUS [None]
